FAERS Safety Report 5384260-9 (Version None)
Quarter: 2007Q3

REPORT INFORMATION
  Report Type: 
  Country: None (occurrence: None)
  Receive Date: 20070710
  Receipt Date: 20061208
  Transmission Date: 20080115
  Serious: Yes (Other)
  Sender: FDA-Public Use
  Company Number: 2006-01254

PATIENT
  Age: 65 Year
  Sex: Male
  Weight: 128.8 kg

DRUGS (10)
  1. VELCADE [Suspect]
     Indication: MULTIPLE MYELOMA
     Dosage: 1.30 MG/M2, INTRAVENOUS
     Route: 042
     Dates: start: 20050829, end: 20051103
  2. VICODIN [Concomitant]
  3. AMBIEN [Concomitant]
  4. MULTIVITAMINS (ERGOCALCIFEROL, PANTHENOL, NICOTINAMIDE, RIBOFLAVIN, TH [Concomitant]
  5. FLONASE [Concomitant]
  6. ACETYLSALICYLIC ACID SRT [Concomitant]
  7. WARFARIN SODIUM [Concomitant]
  8. ATENOLOL [Concomitant]
  9. PRILOSEC [Concomitant]
  10. KYTRIL [Concomitant]

REACTIONS (1)
  - NEUROPATHY PERIPHERAL [None]
